FAERS Safety Report 13507015 (Version 4)
Quarter: 2017Q2

REPORT INFORMATION
  Report Type: Spontaneous
  Country: US (occurrence: US)
  Receive Date: 20170503
  Receipt Date: 20170509
  Transmission Date: 20170830
  Serious: Yes (Other)
  Sender: FDA-Public Use
  Company Number: US-JNJFOC-20170427331

PATIENT
  Age: 39 Year
  Sex: Female
  Weight: 63.5 kg

DRUGS (2)
  1. ZYRTEC [Suspect]
     Active Substance: CETIRIZINE HYDROCHLORIDE
     Indication: SINUS DISORDER
     Route: 048
  2. ZYRTEC [Suspect]
     Active Substance: CETIRIZINE HYDROCHLORIDE
     Indication: MULTIPLE ALLERGIES
     Route: 048

REACTIONS (5)
  - Drug use disorder [Recovered/Resolved]
  - Product use in unapproved indication [Recovered/Resolved]
  - Pruritus [Not Recovered/Not Resolved]
  - Off label use [Recovered/Resolved]
  - Urticaria [Not Recovered/Not Resolved]
